FAERS Safety Report 5646641-5 (Version None)
Quarter: 2008Q1

REPORT INFORMATION
  Report Type: 
  Country: None (occurrence: None)
  Receive Date: 20080303
  Receipt Date: 20080219
  Transmission Date: 20080703
  Serious: Yes (Hospitalization, Other)
  Sender: FDA-Public Use
  Company Number: FR-AMGEN-UK263726

PATIENT
  Sex: Male

DRUGS (4)
  1. MIMPARA [Suspect]
     Indication: HYPERPARATHYROIDISM SECONDARY
     Route: 065
     Dates: start: 20070301, end: 20070901
  2. ANTIINFLAMMATORY NOS [Concomitant]
     Route: 065
  3. CALCIDIA [Concomitant]
     Route: 065
  4. COLECALCIFEROL [Concomitant]
     Route: 065

REACTIONS (5)
  - BLOOD CALCIUM DECREASED [None]
  - BONE FISSURE [None]
  - GAIT DISTURBANCE [None]
  - HYPOPHOSPHATAEMIA [None]
  - OSTEOMALACIA [None]
